FAERS Safety Report 21055664 (Version 1)
Quarter: 2022Q3

REPORT INFORMATION
  Report Type: Spontaneous
  Country: FR (occurrence: FR)
  Receive Date: 20220708
  Receipt Date: 20220708
  Transmission Date: 20221026
  Serious: Yes (Life-Threatening)
  Sender: FDA-Public Use
  Company Number: None

PATIENT
  Age: 51 Year
  Sex: Female

DRUGS (15)
  1. TRAMADOL HYDROCHLORIDE [Suspect]
     Active Substance: TRAMADOL HYDROCHLORIDE
     Indication: Product used for unknown indication
     Dosage: LP 100/ J
     Route: 065
     Dates: end: 20220605
  2. FENOFIBRATE [Suspect]
     Active Substance: FENOFIBRATE
     Indication: Product used for unknown indication
     Dosage: 160 MILLIGRAM DAILY; 160 MG/D
     Route: 065
     Dates: end: 20220605
  3. ACETAMINOPHEN\OPIUM [Suspect]
     Active Substance: ACETAMINOPHEN\OPIUM
     Indication: Product used for unknown indication
     Dosage: STRENGTH : 500 MG/25 MG, 500 MG/ 25 MG  X3/J
     Dates: end: 20220605
  4. DEPAKOTE [Suspect]
     Active Substance: DIVALPROEX SODIUM
     Indication: Fibromyalgia
     Dosage: 1250
     Route: 048
     Dates: end: 20220605
  5. BISOPROLOL FUMARATE\HYDROCHLOROTHIAZIDE [Concomitant]
     Active Substance: BISOPROLOL FUMARATE\HYDROCHLOROTHIAZIDE
     Indication: Product used for unknown indication
     Dosage: 2.5 MG/6.25 MG /J, LODOZ 2.5 MG/6.25 MG
     Dates: end: 20220605
  6. OXAZEPAM [Concomitant]
     Active Substance: OXAZEPAM
     Indication: Fibromyalgia
     Dosage: STRENGTH: 50 MG, 50MG X2, SCORED TABLET
     Route: 048
     Dates: end: 20220605
  7. STELARA [Concomitant]
     Active Substance: USTEKINUMAB
     Indication: Rheumatic disorder
     Dosage: 1 INJECTION / MONTH
     Dates: end: 202203
  8. CYMBALTA [Concomitant]
     Active Substance: DULOXETINE HYDROCHLORIDE
     Indication: Fibromyalgia
     Dosage: 60 MG, STRENGTH: 60 MG
     Route: 048
     Dates: end: 20220605
  9. FUROSEMIDE [Concomitant]
     Active Substance: FUROSEMIDE
     Indication: Product used for unknown indication
     Dosage: 20 MILLIGRAM DAILY; 20 MG/D
     Dates: end: 20220605
  10. TRIMEPRAZINE [Concomitant]
     Active Substance: TRIMEPRAZINE
     Indication: Depression
     Dosage: XXX DROPS / EVENING
     Dates: end: 20220605
  11. IMOVANE [Concomitant]
     Active Substance: ZOPICLONE
     Indication: Depression
     Dosage: 7.5MG
     Route: 048
     Dates: end: 20220605
  12. PACLITAXEL [Concomitant]
     Active Substance: PACLITAXEL
     Indication: Breast cancer
     Dosage: 80 MG/M2, DURATION: 3MONTHS
     Route: 042
     Dates: start: 202101, end: 20220404
  13. ESOMEPRAZOLE [Concomitant]
     Active Substance: ESOMEPRAZOLE
     Indication: Product used for unknown indication
     Dosage: 40 MILLIGRAM DAILY; 40 MG/D; CONTINUED CHRONIC TREATMENT
  14. AMISULPRIDE [Concomitant]
     Active Substance: AMISULPRIDE
     Indication: Fibromyalgia
     Dosage: 100MG
     Route: 048
     Dates: end: 20220605
  15. SPIRONOLACTONE [Concomitant]
     Active Substance: SPIRONOLACTONE
     Indication: Product used for unknown indication
     Dosage: 25 MILLIGRAM DAILY; 25 MG/ D
     Dates: end: 20220605

REACTIONS (1)
  - Pancreatitis acute [Not Recovered/Not Resolved]

NARRATIVE: CASE EVENT DATE: 20220603
